FAERS Safety Report 24449049 (Version 1)
Quarter: 2024Q4

REPORT INFORMATION
  Report Type: Report from Study
  Country: CA (occurrence: CA)
  Receive Date: 20241017
  Receipt Date: 20241017
  Transmission Date: 20250115
  Serious: Yes (Other)
  Sender: SANDOZ
  Company Number: CA-SANDOZ-SDZ2024CA063664

PATIENT
  Sex: Male

DRUGS (1)
  1. ERELZI [Suspect]
     Active Substance: ETANERCEPT-SZZS
     Indication: Psoriatic arthropathy
     Dosage: 50 MG, QW, 50MG/ML (PFS)
     Route: 058
     Dates: start: 20240524

REACTIONS (3)
  - Musculoskeletal stiffness [Unknown]
  - Neck pain [Unknown]
  - Product dose omission issue [Unknown]
